FAERS Safety Report 7890675-7 (Version None)
Quarter: 2011Q4

REPORT INFORMATION
  Report Type: 
  Country: None (occurrence: None)
  Receive Date: 20111103
  Receipt Date: 20110722
  Transmission Date: 20120403
  Serious: No
  Sender: FDA-Public Use
  Company Number: US-AMGEN-USASP2011037458

PATIENT
  Age: 16 Year
  Sex: Female

DRUGS (1)
  1. ENBREL [Suspect]
     Indication: JUVENILE ARTHRITIS
     Dosage: 0.8 ML OF 25 MILLIGRAM MULTI UNIT VIAL
     Route: 058
     Dates: start: 20110721

REACTIONS (1)
  - MUSCULOSKELETAL PAIN [None]
